FAERS Safety Report 8912082 (Version 1)
Quarter: 2012Q4

REPORT INFORMATION
  Report Type: 
  Country: CN (occurrence: CN)
  Receive Date: 20121116
  Receipt Date: 20121116
  Transmission Date: 20130627
  Serious: Yes (Other)
  Sender: FDA-Public Use
  Company Number: CN-PFIZER INC-2012283154

PATIENT
  Age: 87 Year
  Sex: Male

DRUGS (2)
  1. VORICONAZOLE [Suspect]
     Indication: ASPERGILLUS FUMIGATUS INFECTION
     Dosage: 400 mg, 2x/day
     Route: 048
  2. VORICONAZOLE [Suspect]
     Dosage: 200 mg, 2x/day
     Route: 048

REACTIONS (2)
  - Cardiac failure [Recovered/Resolved]
  - Hallucination, visual [Recovered/Resolved]
